FAERS Safety Report 20904091 (Version 3)
Quarter: 2022Q3

REPORT INFORMATION
  Report Type: Report from Study
  Country: CN (occurrence: CN)
  Receive Date: 20220602
  Receipt Date: 20220716
  Transmission Date: 20221026
  Serious: Yes (Death)
  Sender: FDA-Public Use
  Company Number: CN-BoehringerIngelheim-2022-BI-152910

PATIENT
  Age: 61 Year
  Sex: Male
  Weight: 65 kg

DRUGS (7)
  1. ALTEPLASE [Suspect]
     Active Substance: ALTEPLASE
     Indication: Ischaemic stroke
     Dosage: FORM OF ADMIN: POWDER INJECTION
     Route: 042
     Dates: start: 20220114, end: 20220114
  2. ESOMEPRAZOLE SODIUM [Suspect]
     Active Substance: ESOMEPRAZOLE SODIUM
     Indication: Gastrointestinal haemorrhage
     Route: 042
     Dates: start: 20220117, end: 20220120
  3. DEXTROSE [Suspect]
     Active Substance: DEXTROSE
     Indication: Nutritional supplementation
     Route: 041
     Dates: start: 20220102, end: 20220102
  4. DEXTROSE [Suspect]
     Active Substance: DEXTROSE
     Route: 041
     Dates: start: 20220117, end: 20220119
  5. POTASSIUM CHLORIDE [Suspect]
     Active Substance: POTASSIUM CHLORIDE
     Indication: Hypokalaemia
     Route: 042
     Dates: start: 20220102, end: 20220103
  6. POTASSIUM CHLORIDE [Suspect]
     Active Substance: POTASSIUM CHLORIDE
     Route: 041
     Dates: start: 20220118, end: 20220120
  7. DEXTROSE [Suspect]
     Active Substance: DEXTROSE
     Indication: Nutritional supplementation
     Route: 042
     Dates: start: 20220101, end: 20220102

REACTIONS (1)
  - Cerebral infarction [Fatal]

NARRATIVE: CASE EVENT DATE: 20220127
